FAERS Safety Report 25892062 (Version 1)
Quarter: 2025Q4

REPORT INFORMATION
  Report Type: Spontaneous
  Country: US (occurrence: US)
  Receive Date: 20251007
  Receipt Date: 20251007
  Transmission Date: 20260117
  Serious: Yes (Other)
  Sender: KYOWA
  Company Number: US-KYOWAKIRIN-2025KK018639

PATIENT

DRUGS (1)
  1. CRYSVITA [Suspect]
     Active Substance: BUROSUMAB-TWZA
     Indication: Product used for unknown indication
     Dosage: 60 MG, 1X/4 WEEKS
     Route: 058

REACTIONS (2)
  - Spinal operation [Unknown]
  - Product administration error [Unknown]

NARRATIVE: CASE EVENT DATE: 20250824
